FAERS Safety Report 12606573 (Version 1)
Quarter: 2016Q3

REPORT INFORMATION
  Report Type: Spontaneous
  Country: US (occurrence: None)
  Receive Date: 20160728
  Receipt Date: 20160728
  Transmission Date: 20161109
  Serious: Yes (Other)
  Sender: FDA-Public Use
  Company Number: None

PATIENT
  Age: 54 Year
  Sex: Male
  Weight: 88.91 kg

DRUGS (3)
  1. OTEZLA [Suspect]
     Active Substance: APREMILAST
  2. FLEXERALL [Concomitant]
  3. OXYCODONE [Concomitant]
     Active Substance: OXYCODONE

REACTIONS (1)
  - Tooth abscess [None]

NARRATIVE: CASE EVENT DATE: 20160719
